FAERS Safety Report 20580610 (Version 1)
Quarter: 2022Q1

REPORT INFORMATION
  Report Type: Spontaneous
  Country: US (occurrence: US)
  Receive Date: 20220311
  Receipt Date: 20220311
  Transmission Date: 20220423
  Serious: No
  Sender: FDA-Public Use
  Company Number: US-CHIESI-2022CHF00269

PATIENT
  Sex: Female
  Weight: 25 kg

DRUGS (7)
  1. FERRIPROX [Suspect]
     Active Substance: DEFERIPRONE
     Indication: Haemochromatosis
     Dosage: 1000 MILLIGRAM, BID
     Route: 048
     Dates: start: 20200731
  2. FERRIPROX [Suspect]
     Active Substance: DEFERIPRONE
     Indication: Transfusion
     Dosage: 500 MILLIGRAM
     Route: 048
     Dates: start: 20200207
  3. FERRIPROX [Suspect]
     Active Substance: DEFERIPRONE
     Indication: Thalassaemia beta
  4. VITAMIN C [Concomitant]
     Active Substance: ASCORBIC ACID
     Indication: Product used for unknown indication
     Dosage: UNK
  5. DESFERAL [Concomitant]
     Active Substance: DEFEROXAMINE MESYLATE
     Indication: Product used for unknown indication
     Dosage: UNK
  6. CENTRUM SILVER [ASCORBIC ACID;CALCIUM;MINERALS NOS;RETINOL;TOCOPHERYL [Concomitant]
     Indication: Product used for unknown indication
     Dosage: UNK
  7. ZYRTEC [Concomitant]
     Active Substance: CETIRIZINE HYDROCHLORIDE
     Indication: Product used for unknown indication
     Dosage: UNK

REACTIONS (1)
  - Suspected COVID-19 [Recovering/Resolving]
